FAERS Safety Report 8846585 (Version 7)
Quarter: 2012Q4

REPORT INFORMATION
  Report Type: 
  Country: US (occurrence: US)
  Receive Date: 20121017
  Receipt Date: 20121030
  Transmission Date: 20130627
  Serious: No
  Sender: FDA-Public Use
  Company Number: US-VERTEX PHARMACEUTICAL INC.-2012-022938

PATIENT
  Age: 46 None
  Sex: Female
  Weight: 133 kg

DRUGS (6)
  1. VX-950 [Suspect]
     Indication: HEPATITIS C
     Dosage: 750 mg, tid
     Route: 048
     Dates: start: 20121006
  2. RIBAVIRIN [Concomitant]
     Indication: HEPATITIS C
     Dosage: 600 mg, bid
     Route: 048
     Dates: start: 20121006
  3. PEGASYS [Concomitant]
     Indication: HEPATITIS C
     Dosage: 180 �g, UNK
     Route: 058
     Dates: start: 20121005
  4. BP MEDS [Concomitant]
     Indication: BLOOD PRESSURE
  5. THYROID MEDS [Concomitant]
     Indication: THYROID DISORDER
  6. IBUPROFEN [Concomitant]
     Indication: PAIN

REACTIONS (8)
  - Influenza like illness [Not Recovered/Not Resolved]
  - Feeling abnormal [Not Recovered/Not Resolved]
  - Decreased appetite [Not Recovered/Not Resolved]
  - Abdominal pain upper [Not Recovered/Not Resolved]
  - Rash generalised [Not Recovered/Not Resolved]
  - Rash vesicular [Recovered/Resolved]
  - Nausea [Not Recovered/Not Resolved]
  - Vomiting [Not Recovered/Not Resolved]
